FAERS Safety Report 6998098-X (Version None)
Quarter: 2010Q3

REPORT INFORMATION
  Report Type: 
  Country: None (occurrence: None)
  Receive Date: 20100920
  Receipt Date: 20100415
  Transmission Date: 20110219
  Serious: Yes (Disabling)
  Sender: FDA-Public Use
  Company Number: US-ASTRAZENECA-2007UW12603

PATIENT
  Sex: Female

DRUGS (6)
  1. SEROQUEL [Suspect]
     Dosage: 25-100MG
     Route: 048
     Dates: start: 20020618
  2. TRILEPTAL [Concomitant]
     Route: 048
     Dates: start: 20021212
  3. CELEXA [Concomitant]
     Route: 048
     Dates: start: 20020701
  4. TRAZODONE HCL [Concomitant]
     Route: 048
     Dates: start: 20020601
  5. BUSPIRONE HCL [Concomitant]
     Route: 048
     Dates: start: 20020602
  6. RISPERDAL [Concomitant]
     Route: 048
     Dates: start: 20020610

REACTIONS (1)
  - DIABETES MELLITUS [None]
